FAERS Safety Report 10600460 (Version 1)
Quarter: 2014Q4

REPORT INFORMATION
  Report Type: Spontaneous
  Country: US (occurrence: US)
  Receive Date: 20141124
  Receipt Date: 20141124
  Transmission Date: 20150529
  Serious: Yes (Hospitalization)
  Sender: FDA-Public Use
  Company Number: US-CIPLA LTD.-2014US02051

PATIENT

DRUGS (1)
  1. AMLODIPINE [Suspect]
     Active Substance: AMLODIPINE BESYLATE
     Indication: HYPERTENSION
     Dosage: 10MG , BID
     Route: 048

REACTIONS (5)
  - Toxicity to various agents [Recovered/Resolved]
  - Intestinal obstruction [Recovered/Resolved]
  - Respiratory failure [Recovered/Resolved]
  - Cardiogenic shock [Recovered/Resolved]
  - Ileus paralytic [Recovered/Resolved]
